FAERS Safety Report 11290996 (Version 1)
Quarter: 2015Q3

REPORT INFORMATION
  Report Type: Spontaneous
  Country: US (occurrence: None)
  Receive Date: 20150720
  Receipt Date: 20150720
  Transmission Date: 20151125
  Serious: Yes (Other)
  Sender: FDA-Public Use
  Company Number: TPU2015-00330

PATIENT
  Sex: Female
  Weight: 45.36 kg

DRUGS (1)
  1. LIDOCAINE PATCH 5% (QUALITEST) (LIDOCAINE PATCH 5%) ( 5 PERCENT, POULTICE OR PATCH) [Suspect]
     Active Substance: LIDOCAINE
     Indication: NEURALGIA
     Dosage: 1 PLASTER, 1 IN 1 D, TOPICAL
     Route: 061

REACTIONS (9)
  - Drug ineffective for unapproved indication [None]
  - Abasia [None]
  - Fall [None]
  - Foot operation [None]
  - Wrong technique in product usage process [None]
  - Product quality issue [None]
  - Intentional product use issue [None]
  - Knee operation [None]
  - Surgery [None]
